FAERS Safety Report 11258461 (Version 2)
Quarter: 2015Q3

REPORT INFORMATION
  Report Type: Report from Study
  Country: NL (occurrence: NL)
  Receive Date: 20150710
  Receipt Date: 20150714
  Transmission Date: 20151125
  Serious: Yes (Hospitalization)
  Sender: FDA-Public Use
  Company Number: NL-ROCHE-1605509

PATIENT
  Age: 70 Year
  Sex: Female

DRUGS (15)
  1. FOLIC ACID. [Concomitant]
     Active Substance: FOLIC ACID
     Route: 048
  2. LIDOCAINE. [Concomitant]
     Active Substance: LIDOCAINE
     Dosage: FLUID OROMUCOS MOUTH SPRAY 3.8 MG/ML
     Route: 048
  3. PANTOPRAZOLE SODIUM. [Concomitant]
     Active Substance: PANTOPRAZOLE SODIUM
     Indication: PROPHYLAXIS
     Route: 048
  4. PREDNISOLONE. [Concomitant]
     Active Substance: PREDNISOLONE
     Indication: ASTHMA
     Route: 048
  5. MIRCERA [Suspect]
     Active Substance: METHOXY POLYETHYLENE GLYCOL-EPOETIN BETA
     Indication: NEPHROGENIC ANAEMIA
     Route: 058
     Dates: start: 20140213
  6. LIDOCAINE GEL [Concomitant]
     Dosage: 20MG/ML
     Route: 048
  7. TERBUTALINE [Concomitant]
     Active Substance: TERBUTALINE
     Indication: ASTHMA
     Dosage: 2-6/DAY
     Route: 055
  8. CALCI [Concomitant]
     Dosage: BONE INCREASE
     Route: 048
  9. DEXTRAN [Concomitant]
     Active Substance: DEXTRAN
     Dosage: 4 TIMES A DAY 1 DROP, 1/3 MG
     Route: 031
  10. MACROGOL [Concomitant]
     Active Substance: POLYETHYLENE GLYCOLS
     Dosage: ONCE DAILY 1 SACHET
     Route: 048
  11. BUDESONIDE. [Concomitant]
     Active Substance: BUDESONIDE
     Indication: ASTHMA
     Route: 055
  12. ALPHACALCIDOL [Concomitant]
     Active Substance: ALFACALCIDOL
     Dosage: CAPSULE 0.25 MCG
     Route: 048
  13. MICONAZOL [Concomitant]
     Dosage: 20MG/G ORAL GEL
     Route: 048
  14. CHLORHEXIDINE [Concomitant]
     Active Substance: CHLORHEXIDINE
     Dosage: 2 MG/ML
     Route: 048
  15. METHOTREXATE [Concomitant]
     Active Substance: METHOTREXATE
     Dosage: INJECTION FLUID WWSP 7.5MG
     Route: 058

REACTIONS (1)
  - Upper respiratory tract infection [Recovering/Resolving]

NARRATIVE: CASE EVENT DATE: 20150703
